FAERS Safety Report 12784767 (Version 5)
Quarter: 2017Q1

REPORT INFORMATION
  Report Type: Spontaneous
  Country: US (occurrence: US)
  Receive Date: 20160927
  Receipt Date: 20170215
  Transmission Date: 20170428
  Serious: No
  Sender: FDA-Public Use
  Company Number: US-PFIZER INC-2016445848

PATIENT
  Age: 68 Year
  Sex: Female
  Weight: 83.9 kg

DRUGS (1)
  1. XELJANZ XR [Suspect]
     Active Substance: TOFACITINIB CITRATE
     Indication: RHEUMATOID ARTHRITIS
     Dosage: 11 MG, DAILY
     Route: 048
     Dates: start: 20160830

REACTIONS (6)
  - Red blood cell count decreased [Unknown]
  - Somnolence [Not Recovered/Not Resolved]
  - Activities of daily living impaired [Unknown]
  - Haemoglobin decreased [Unknown]
  - Increased tendency to bruise [Not Recovered/Not Resolved]
  - Fatigue [Not Recovered/Not Resolved]

NARRATIVE: CASE EVENT DATE: 20160908
